FAERS Safety Report 9120023 (Version 1)
Quarter: 2013Q1

REPORT INFORMATION
  Report Type: Spontaneous
  Country: CN (occurrence: CN)
  Receive Date: 20130226
  Receipt Date: 20130226
  Transmission Date: 20140127
  Serious: Yes (Death, Other)
  Sender: FDA-Public Use
  Company Number: CN-ASTELLAS-2013US002007

PATIENT
  Age: 43 Year
  Sex: Female

DRUGS (2)
  1. TARCEVA [Suspect]
     Indication: LUNG ADENOCARCINOMA
     Dosage: UNK
     Route: 048
  2. TARCEVA [Suspect]
     Dosage: UNK
     Route: 048

REACTIONS (3)
  - Sudden cardiac death [Fatal]
  - Hepatitis B [Not Recovered/Not Resolved]
  - Hepatic function abnormal [Not Recovered/Not Resolved]
